FAERS Safety Report 5037024-X (Version None)
Quarter: 2006Q2

REPORT INFORMATION
  Report Type: 
  Country: None (occurrence: None)
  Receive Date: 20060615
  Receipt Date: 20060302
  Transmission Date: 20061013
  Serious: Yes (Hospitalization, Other)
  Sender: FDA-Public Use
  Company Number: 0206005

PATIENT
  Age: 86 Year
  Sex: Male

DRUGS (1)
  1. DEPODUR [Suspect]
     Indication: POSTOPERATIVE ANALGESIA
     Dates: start: 20060301, end: 20060301

REACTIONS (1)
  - HYPOTENSION [None]
